FAERS Safety Report 10088025 (Version 2)
Quarter: 2014Q2

REPORT INFORMATION
  Report Type: Spontaneous
  Country: US (occurrence: US)
  Receive Date: 20140420
  Receipt Date: 20140526
  Transmission Date: 20141212
  Serious: Yes (Other)
  Sender: FDA-Public Use
  Company Number: US-009507513-1404USA008964

PATIENT
  Age: 64 Year
  Sex: Male

DRUGS (2)
  1. ZOCOR [Suspect]
     Dosage: UNK
     Route: 048
  2. CYCLOSPORINE [Interacting]
     Dosage: UNK

REACTIONS (2)
  - Rhabdomyolysis [Recovering/Resolving]
  - Drug interaction [Unknown]
